FAERS Safety Report 7506626-0 (Version None)
Quarter: 2011Q2

REPORT INFORMATION
  Report Type: 
  Country: None (occurrence: None)
  Receive Date: 20110526
  Receipt Date: 20110516
  Transmission Date: 20111010
  Serious: Yes (Hospitalization, Other)
  Sender: FDA-Public Use
  Company Number: US-BAYER-201041965NA

PATIENT
  Age: 34 Year
  Sex: Female
  Weight: 117.91 kg

DRUGS (10)
  1. ATENOLOL [Concomitant]
     Dosage: 50 MG, UNK
     Route: 048
  2. BUMETANIDE [Concomitant]
     Dosage: 1 MG, QD
     Route: 048
  3. CYMBALTA [Concomitant]
     Dosage: 30 MG, UNK
     Dates: start: 20080101
  4. NEURONTIN [Concomitant]
     Dosage: UNK
     Dates: start: 20080101
  5. HYZAAR [Concomitant]
     Indication: HYPERTENSION
     Dosage: 100 MG, UNK
     Route: 048
     Dates: start: 20050101, end: 20090101
  6. METFORMIN HCL [Concomitant]
     Dosage: 500 MG, UNK
     Route: 048
  7. YAZ [Suspect]
     Indication: ORAL CONTRACEPTION
     Route: 048
     Dates: start: 20080701, end: 20090201
  8. DIAZEPAM [Concomitant]
     Dosage: 5 MG, UNK
     Route: 048
  9. PROPOXYPHENE HYDROCHLORIDE [Concomitant]
     Dosage: 65 MG, UNK
     Route: 048
  10. YAZ [Suspect]
     Indication: ACNE

REACTIONS (4)
  - PAIN [None]
  - OEDEMA PERIPHERAL [None]
  - DEEP VEIN THROMBOSIS [None]
  - THROMBOPHLEBITIS SUPERFICIAL [None]
